FAERS Safety Report 19546138 (Version 2)
Quarter: 2022Q1

REPORT INFORMATION
  Report Type: Report from Study
  Country: US (occurrence: RU)
  Receive Date: 20210713
  Receipt Date: 20220318
  Transmission Date: 20220424
  Serious: Yes (Death, Hospitalization, Other)
  Sender: FDA-Public Use
  Company Number: US-ROCHE-2867438

PATIENT
  Age: 66 Year
  Sex: Female
  Weight: 98.9 kg

DRUGS (2)
  1. OBINUTUZUMAB [Suspect]
     Active Substance: OBINUTUZUMAB
     Indication: Chronic lymphocytic leukaemia
     Dosage: ON DAY 1, CYCLE 1?DATE OF MOST RECENT DOSE OF OBINUTUZUMAB PRIOR TO ONSET OF SERIOUS ADVERSE EVENT (
     Route: 042
     Dates: start: 20210429
  2. IBRUTINIB [Suspect]
     Active Substance: IBRUTINIB
     Indication: Chronic lymphocytic leukaemia
     Dosage: DATE OF MOST RECENT DOSE OF IBRUTINIB ADMINISTERED PRIOR TO THE ONSET OF SERIOUS ADVERSE EVENT ON 20
     Route: 048
     Dates: start: 20210429

REACTIONS (3)
  - COVID-19 [Fatal]
  - Lymphocyte count increased [Recovered/Resolved with Sequelae]
  - Neutrophil count decreased [Recovered/Resolved with Sequelae]

NARRATIVE: CASE EVENT DATE: 20210429
